FAERS Safety Report 6535935-7 (Version None)
Quarter: 2010Q1

REPORT INFORMATION
  Report Type: 
  Country: None (occurrence: None)
  Receive Date: 20100113
  Receipt Date: 20100112
  Transmission Date: 20100710
  Serious: Yes (Hospitalization, Other)
  Sender: FDA-Public Use
  Company Number: A0838736A

PATIENT
  Age: 40 Year
  Sex: Male
  Weight: 97 kg

DRUGS (3)
  1. NELARABINE [Suspect]
     Indication: T-CELL LYMPHOMA
     Route: 065
  2. CYTARABINE [Suspect]
     Indication: T-CELL LYMPHOMA
     Route: 065
  3. IDARUBICIN HCL [Suspect]
     Indication: T-CELL LYMPHOMA
     Route: 065

REACTIONS (12)
  - ATAXIA [None]
  - CRANIAL NERVE DISORDER [None]
  - DEMYELINATING POLYNEUROPATHY [None]
  - FEBRILE NEUTROPENIA [None]
  - HYPOGAMMAGLOBULINAEMIA [None]
  - NEUROPATHY PERIPHERAL [None]
  - PAIN [None]
  - PARAESTHESIA [None]
  - PARALYSIS [None]
  - PERIPHERAL SENSORY NEUROPATHY [None]
  - PROTEIN TOTAL DECREASED [None]
  - SENSORY LOSS [None]
